FAERS Safety Report 7364452-X (Version None)
Quarter: 2011Q1

REPORT INFORMATION
  Report Type: 
  Country: None (occurrence: None)
  Receive Date: 20110315
  Receipt Date: 20110315
  Transmission Date: 20110831
  Serious: Yes (Life-Threatening, Hospitalization)
  Sender: FDA-Public Use
  Company Number: None

PATIENT
  Age: 87 Year
  Sex: Female
  Weight: 63 kg

DRUGS (1)
  1. PRADAXA [Suspect]
     Indication: ATRIAL FIBRILLATION
     Dosage: 150MG TABS TWICE DAILY PO
     Route: 048

REACTIONS (5)
  - CONFUSIONAL STATE [None]
  - VERBIGERATION [None]
  - VIITH NERVE PARALYSIS [None]
  - TREATMENT FAILURE [None]
  - APHASIA [None]
